FAERS Safety Report 8553713-4 (Version None)
Quarter: 2012Q3

REPORT INFORMATION
  Report Type: 
  Country: None (occurrence: None)
  Receive Date: 20120731
  Receipt Date: 20120726
  Transmission Date: 20120928
  Serious: Yes (Death)
  Sender: FDA-Public Use
  Company Number: GB-PFIZER INC-2012072981

PATIENT
  Age: 59 Year
  Sex: Male

DRUGS (21)
  1. HYDROCORTISONE [Concomitant]
     Dosage: UNK
     Dates: start: 20030606
  2. BROMOCRIPTINE [Concomitant]
     Dosage: UNK
     Dates: start: 19840626
  3. LEVOTHYROXINE SODIUM [Concomitant]
     Indication: PRIMARY HYPOTHYROIDISM
     Dosage: UNK
     Dates: start: 19850703, end: 20060210
  4. GENOTROPIN [Suspect]
     Indication: GROWTH HORMONE DEFICIENCY
     Dosage: 0.3 MG/DAY, 7 INJECTIONS PER WEEK
     Dates: start: 20050818
  5. HYDROCORTISONE [Concomitant]
     Indication: BLOOD CORTICOTROPHIN DECREASED
     Dosage: UNK
     Dates: start: 19680924
  6. BROMOCRIPTINE [Concomitant]
     Dosage: UNK
     Dates: start: 19830421
  7. TESTOSTERONE PHENYL PROPIONATE INJ [Concomitant]
     Indication: HYPOGONADISM MALE
  8. HYDROCORTISONE [Concomitant]
     Dosage: UNK
     Dates: start: 20040630, end: 20060210
  9. TESTOSTERONE [Concomitant]
     Indication: BLOOD LUTEINISING HORMONE DECREASED
     Dosage: UNK
     Dates: start: 20040421, end: 20060210
  10. TESTOSTERONE [Concomitant]
     Indication: BLOOD FOLLICLE STIMULATING HORMONE DECREASED
  11. TESTOSTERONE [Concomitant]
     Indication: HYPOGONADISM MALE
  12. LEVOTHYROXINE SODIUM [Concomitant]
     Indication: BLOOD THYROID STIMULATING HORMONE DECREASED
     Dosage: UNK
     Dates: start: 19690203
  13. BROMOCRIPTINE [Concomitant]
     Indication: PARKINSONISM
     Dosage: UNK
     Dates: start: 19810519
  14. BROMOCRIPTINE [Concomitant]
     Dosage: UNK
     Dates: start: 19811202
  15. BROMOCRIPTINE [Concomitant]
     Dosage: UNK
     Dates: start: 19831202
  16. TESTOSTERONE PHENYL PROPIONATE INJ [Concomitant]
     Indication: BLOOD LUTEINISING HORMONE DECREASED
     Dosage: UNK
     Dates: start: 19791106
  17. HYDROCORTISONE [Concomitant]
     Dosage: UNK
     Dates: start: 19880713
  18. HYDROCORTISONE [Concomitant]
     Dosage: UNK
     Dates: start: 20040227
  19. BROMOCRIPTINE [Concomitant]
     Dosage: UNK
     Dates: start: 19810727
  20. TESTOSTERONE PHENYL PROPIONATE INJ [Concomitant]
     Indication: BLOOD FOLLICLE STIMULATING HORMONE DECREASED
     Dosage: UNK
     Dates: start: 19881018, end: 20060210
  21. BROMOCRIPTINE [Concomitant]
     Dosage: UNK
     Dates: start: 19890317, end: 20060210

REACTIONS (1)
  - DEATH [None]
